FAERS Safety Report 9257604 (Version 2)
Quarter: 2013Q2

REPORT INFORMATION
  Report Type: Report from Study
  Country: JP (occurrence: JP)
  Receive Date: 20130426
  Receipt Date: 20130426
  Transmission Date: 20140414
  Serious: Yes (Hospitalization)
  Sender: FDA-Public Use
  Company Number: JP-EISAI INC-E2007-01150-CLI-JP

PATIENT
  Age: 21 Year
  Sex: Male
  Weight: 56.2 kg

DRUGS (4)
  1. E2007/PLACEBO [Suspect]
     Indication: EPILEPSY
     Dosage: DOUBLE-BLIND
     Route: 048
     Dates: start: 20120814
  2. GABAPENTIN [Concomitant]
     Indication: EPILEPSY
  3. E KEPPRA [Concomitant]
     Indication: EPILEPSY
  4. TEGRETOL [Concomitant]
     Indication: EPILEPSY

REACTIONS (1)
  - Status epilepticus [Recovered/Resolved]
